FAERS Safety Report 16417263 (Version 7)
Quarter: 2020Q2

REPORT INFORMATION
  Report Type: Report from Study
  Country: US (occurrence: US)
  Receive Date: 20190611
  Receipt Date: 20200507
  Transmission Date: 20200713
  Serious: Yes (Hospitalization)
  Sender: FDA-Public Use
  Company Number: US-ACTELION-A-NJ2018-181953

PATIENT
  Age: 24 Year
  Sex: Female
  Weight: 69.39 kg

DRUGS (8)
  1. VELETRI [Suspect]
     Active Substance: EPOPROSTENOL
     Dosage: 7 NG/KG, PER MIN
     Route: 042
  2. VELETRI [Suspect]
     Active Substance: EPOPROSTENOL
     Dosage: 16 NG/KG, PER MIN
     Route: 042
  3. VELETRI [Suspect]
     Active Substance: EPOPROSTENOL
     Dosage: 13 NG/KG, PER MIN
     Route: 042
  4. VELETRI [Suspect]
     Active Substance: EPOPROSTENOL
     Dosage: 4 NG/KG, PER MIN
     Route: 042
  5. WARFARIN [Concomitant]
     Active Substance: WARFARIN
  6. VELETRI [Suspect]
     Active Substance: EPOPROSTENOL
     Dosage: 3.5 NG/KG, PER MIN
     Route: 042
     Dates: start: 20181106
  7. VELETRI [Suspect]
     Active Substance: EPOPROSTENOL
     Indication: PULMONARY ARTERIAL HYPERTENSION
     Dosage: 18 NG/KG, PER MIN
     Route: 042
  8. VELETRI [Suspect]
     Active Substance: EPOPROSTENOL
     Dosage: 17 NG/KG, PER MIN
     Route: 042

REACTIONS (12)
  - Nausea [Unknown]
  - Catheter site erythema [Unknown]
  - Catheter site infection [Unknown]
  - Device related infection [Unknown]
  - Catheter site irritation [Unknown]
  - Headache [Unknown]
  - Catheter placement [Unknown]
  - Dyspnoea exertional [Unknown]
  - Road traffic accident [Unknown]
  - Infection [Unknown]
  - Dyspnoea at rest [Unknown]
  - Device malfunction [Unknown]

NARRATIVE: CASE EVENT DATE: 20181108
